FAERS Safety Report 7576719-0 (Version None)
Quarter: 2011Q2

REPORT INFORMATION
  Report Type: 
  Country: None (occurrence: None)
  Receive Date: 20110525
  Receipt Date: 20110420
  Transmission Date: 20111010
  Serious: No
  Sender: FDA-Public Use
  Company Number: 327082

PATIENT
  Age: 81 Year
  Sex: Male

DRUGS (2)
  1. VICTOZA [Suspect]
     Indication: TYPE 2 DIABETES MELLITUS
     Dosage: 1.2 MG/DL, QD, SUBCUTANEOUS
     Route: 058
     Dates: start: 20110411
  2. LEVEMIR [Suspect]
     Indication: TYPE 2 DIABETES MELLITUS
     Dosage: 1.2 MG, QD, SUBCUTANEOUS
     Route: 058

REACTIONS (1)
  - BLOOD GLUCOSE INCREASED [None]
